FAERS Safety Report 7479235-X (Version None)
Quarter: 2011Q2

REPORT INFORMATION
  Report Type: 
  Country: None (occurrence: None)
  Receive Date: 20110513
  Receipt Date: 20110502
  Transmission Date: 20111010
  Serious: Yes (Other)
  Sender: FDA-Public Use
  Company Number: B0717018A

PATIENT
  Age: 58 Year
  Sex: Female

DRUGS (1)
  1. LAPATINIB [Suspect]
     Route: 065
     Dates: end: 20110201

REACTIONS (6)
  - DRY EYE [None]
  - PARONYCHIA [None]
  - HEADACHE [None]
  - VITREOUS DISORDER [None]
  - TINNITUS [None]
  - PAIN IN EXTREMITY [None]
